FAERS Safety Report 17155340 (Version 1)
Quarter: 2019Q4

REPORT INFORMATION
  Report Type: Spontaneous
  Country: US (occurrence: US)
  Receive Date: 20191215
  Receipt Date: 20191215
  Transmission Date: 20200122
  Serious: No
  Sender: FDA-Public Use
  Company Number: NVSC2019US011868

PATIENT
  Age: 45 Year
  Sex: Female

DRUGS (2)
  1. MEXILETINE [Suspect]
     Active Substance: MEXILETINE
     Indication: ARRHYTHMIA
     Route: 065
  2. AMIODARONE [Suspect]
     Active Substance: AMIODARONE
     Indication: ARRHYTHMIA
     Route: 065

REACTIONS (1)
  - Therapy non-responder [Unknown]
